FAERS Safety Report 5827690-0 (Version None)
Quarter: 2008Q2

REPORT INFORMATION
  Report Type: 
  Country: None (occurrence: None)
  Receive Date: 20080601
  Receipt Date: 20080226
  Transmission Date: 20081010
  Serious: No
  Sender: FDA-Public Use
  Company Number: US200802002180

PATIENT
  Age: 69 Year
  Sex: Female
  Weight: 78.9 kg

DRUGS (6)
  1. BYETTA [Suspect]
     Indication: INSULIN-REQUIRING TYPE 2 DIABETES MELLITUS
     Dosage: 5 UG, 2/D, SUBCUTANEOUS
     Route: 058
     Dates: start: 20080204, end: 20080209
  2. EXENATIDE 5MCG PEN, DISPOSABLE DEVICE (EXENATIDE PEN (5MCG)) PEN, DISP [Concomitant]
  3. NOVOLOG [Concomitant]
  4. LEVEMIR (INSULIN DETEMIR) [Concomitant]
  5. DRUG USED IN DIABETES [Concomitant]
  6. METFORMIN HCL [Concomitant]

REACTIONS (7)
  - DECREASED APPETITE [None]
  - DIARRHOEA [None]
  - DIZZINESS [None]
  - HEADACHE [None]
  - INSOMNIA [None]
  - NAUSEA [None]
  - RESTLESSNESS [None]
